FAERS Safety Report 8121758-4 (Version None)
Quarter: 2012Q1

REPORT INFORMATION
  Report Type: 
  Country: None (occurrence: None)
  Receive Date: 20120206
  Receipt Date: 20120124
  Transmission Date: 20120608
  Serious: Yes (Hospitalization, Other)
  Sender: FDA-Public Use
  Company Number: NSR_00480_2012

PATIENT
  Age: 86 Year
  Sex: Male

DRUGS (3)
  1. LISINOPRIL [Concomitant]
  2. METOCLOPRAMIDE [Suspect]
     Indication: PRODUCT USED FOR UNKNOWN INDICATION
     Dosage: (10 MG QID)
  3. L-THYROXINE /00068001/ [Concomitant]

REACTIONS (7)
  - TORSADE DE POINTES [None]
  - CARDIAC FAILURE [None]
  - BLOOD MAGNESIUM DECREASED [None]
  - RENAL FAILURE [None]
  - ELECTROCARDIOGRAM QT PROLONGED [None]
  - OEDEMA PERIPHERAL [None]
  - BLOOD POTASSIUM DECREASED [None]
